FAERS Safety Report 19997054 (Version 2)
Quarter: 2022Q2

REPORT INFORMATION
  Report Type: Spontaneous
  Country: FR (occurrence: FR)
  Receive Date: 20211026
  Receipt Date: 20220413
  Transmission Date: 20220721
  Serious: Yes (Other)
  Sender: FDA-Public Use
  Company Number: None

PATIENT
  Age: 46 Year
  Sex: Male
  Weight: 70 kg

DRUGS (12)
  1. GEMCITABINE HYDROCHLORIDE [Suspect]
     Active Substance: GEMCITABINE HYDROCHLORIDE
     Indication: Bladder transitional cell carcinoma
     Dosage: UNK UNK, CYCLIC (CYCLE EVERY 28 DAYS WITH A TREATMENT ON DAY 1 AND DAY 8)
     Dates: start: 20210722
  2. GEMCITABINE HYDROCHLORIDE [Suspect]
     Active Substance: GEMCITABINE HYDROCHLORIDE
     Dosage: 1600 MG, CYCLIC (CYCLE EVERY 28 DAYS WITH A TREATMENT ON DAY 1 AND DAY 8)
     Route: 042
     Dates: start: 20210923, end: 20210923
  3. SPIKEVAX [Suspect]
     Active Substance: ELASOMERAN
     Indication: COVID-19 immunisation
     Dosage: 1 DF, SINGLE
     Route: 030
     Dates: start: 20211002, end: 20211002
  4. SPIKEVAX [Suspect]
     Active Substance: ELASOMERAN
     Dosage: 1 DF, SINGLE
     Dates: start: 20210903, end: 20210903
  5. CARBOPLATIN [Concomitant]
     Active Substance: CARBOPLATIN
     Dosage: UNK UNK, CYCLIC (CYCLE EVERY 28 DAYS WITH A TREATMENT ON DAY 1 AND DAY 8)
     Dates: start: 20210722
  6. CARBOPLATIN [Concomitant]
     Active Substance: CARBOPLATIN
     Dosage: UNK UNK, CYCLIC (CYCLE EVERY 28 DAYS WITH A TREATMENT ON DAY 1 AND DAY 8)
     Dates: start: 20210916
  7. ATORVASTATIN [Concomitant]
     Active Substance: ATORVASTATIN
     Dosage: UNK
  8. BISOPROLOL [Concomitant]
     Active Substance: BISOPROLOL
     Dosage: UNK
  9. TICAGRELOR [Concomitant]
     Active Substance: TICAGRELOR
     Dosage: UNK
  10. KARDEGIC [Concomitant]
     Active Substance: ASPIRIN DL-LYSINE
     Dosage: UNK
  11. LANSOPRAZOLE [Concomitant]
     Active Substance: LANSOPRAZOLE
     Dosage: UNK
  12. NICOTINE [Concomitant]
     Active Substance: NICOTINE
     Dosage: UNK

REACTIONS (1)
  - Deep vein thrombosis [Recovering/Resolving]

NARRATIVE: CASE EVENT DATE: 20211003
